FAERS Safety Report 7239237-5 (Version None)
Quarter: 2011Q1

REPORT INFORMATION
  Report Type: 
  Country: None (occurrence: None)
  Receive Date: 20110121
  Receipt Date: 20110110
  Transmission Date: 20110831
  Serious: Yes (Hospitalization)
  Sender: FDA-Public Use
  Company Number: US-ENDO PHARMACEUTICALS INC.-VANT20100075

PATIENT
  Sex: Male
  Weight: 86.714 kg

DRUGS (11)
  1. ZOCOR [Concomitant]
     Route: 048
     Dates: start: 20100719
  2. VITAMIN D [Concomitant]
     Dosage: 50000 UNITS
     Route: 048
     Dates: start: 20100115, end: 20100118
  3. LISINOPRIL [Concomitant]
     Dates: start: 20100810
  4. ASPIRIN [Concomitant]
     Route: 048
     Dates: start: 20101004
  5. VANTAS [Suspect]
     Indication: PROSTATE CANCER
     Route: 058
     Dates: start: 20100514
  6. PANTOPRAZOLE SODIUM [Concomitant]
     Route: 048
     Dates: start: 20101102
  7. ZOLPIDEM TARTRATE [Concomitant]
     Dosage: 10 MG
     Route: 048
     Dates: start: 20101116
  8. VOLTAREN [Concomitant]
     Indication: ARTHROPATHY
     Dosage: 1 %
     Route: 061
     Dates: start: 20101102
  9. PLAVIX [Concomitant]
     Route: 048
     Dates: start: 20100914, end: 20101005
  10. PAXIL [Concomitant]
     Route: 048
     Dates: start: 20100421, end: 20101004
  11. HYDROCHLOROTHIAZIDE [Concomitant]
     Indication: HYPERTENSION
     Route: 048
     Dates: start: 20090320, end: 20100315

REACTIONS (7)
  - ATAXIA [None]
  - NAUSEA [None]
  - LETHARGY [None]
  - DIZZINESS [None]
  - HEADACHE [None]
  - DIPLOPIA [None]
  - HYPERTENSION [None]
